FAERS Safety Report 16763287 (Version 1)
Quarter: 2019Q3

REPORT INFORMATION
  Report Type: Spontaneous
  Country: PL (occurrence: PL)
  Receive Date: 20190902
  Receipt Date: 20190902
  Transmission Date: 20191005
  Serious: Yes (Other)
  Sender: FDA-Public Use
  Company Number: PL-TAKEDA-2019TEU010261

PATIENT
  Sex: Female

DRUGS (2)
  1. DEXILANT [Suspect]
     Active Substance: DEXLANSOPRAZOLE
     Dosage: 60 MILLIGRAM
     Route: 065
     Dates: start: 20160311, end: 20160406
  2. DEXILANT [Suspect]
     Active Substance: DEXLANSOPRAZOLE
     Indication: ABDOMINAL DISCOMFORT
     Dosage: 30 MILLIGRAM
     Route: 065
     Dates: start: 20160311, end: 20160406

REACTIONS (13)
  - Asthenia [Unknown]
  - Hypersensitivity [Unknown]
  - Dizziness [Unknown]
  - Insomnia [Unknown]
  - Dry mouth [Unknown]
  - Abdominal pain upper [Unknown]
  - Pain [Unknown]
  - Pallor [Unknown]
  - Abdominal distension [Unknown]
  - Weight decreased [Unknown]
  - Throat tightness [Unknown]
  - Intellectual disability [Unknown]
  - Disturbance in attention [Unknown]

NARRATIVE: CASE EVENT DATE: 20160311
